FAERS Safety Report 7033736-7 (Version None)
Quarter: 2010Q4

REPORT INFORMATION
  Report Type: 
  Country: None (occurrence: None)
  Receive Date: 20101007
  Receipt Date: 20100921
  Transmission Date: 20110411
  Serious: Yes (Other)
  Sender: FDA-Public Use
  Company Number: PHHY2010BR65925

PATIENT
  Age: 68 Year
  Sex: Female

DRUGS (1)
  1. ALISKIREN [Suspect]
     Dosage: 300 MG, QD

REACTIONS (2)
  - MICROALBUMINURIA [None]
  - PROTEINURIA [None]
